FAERS Safety Report 4755046-0 (Version None)
Quarter: 2005Q3

REPORT INFORMATION
  Report Type: 
  Country: None (occurrence: None)
  Receive Date: 20050829
  Receipt Date: 20050810
  Transmission Date: 20060218
  Serious: Yes (Hospitalization, Other)
  Sender: FDA-Public Use
  Company Number: JP-BRISTOL-MYERS SQUIBB COMPANY-13080114

PATIENT
  Age: 77 Year
  Sex: Female

DRUGS (11)
  1. GATIFLO TABS 100 MG [Suspect]
     Indication: URINARY TRACT INFECTION
     Route: 048
     Dates: start: 20050805, end: 20050809
  2. PROTHIADEN [Concomitant]
     Route: 048
     Dates: start: 20031104
  3. ETIZOLAM [Concomitant]
     Route: 048
     Dates: start: 20031104
  4. DIASTASE [Concomitant]
     Route: 048
     Dates: start: 20041105
  5. NORVASC [Concomitant]
     Route: 048
     Dates: start: 20041118
  6. DIOVAN [Concomitant]
     Route: 048
     Dates: start: 20050801
  7. PRAVASTATIN SODIUM [Concomitant]
     Route: 048
     Dates: start: 20031110
  8. PAXIL [Concomitant]
     Route: 048
     Dates: start: 20031211
  9. VOLTAREN [Concomitant]
     Route: 062
     Dates: start: 20030510
  10. CHINESE HERBS [Concomitant]
     Route: 048
     Dates: start: 20031125
  11. CEFAMEZIN [Concomitant]
     Indication: URINARY TRACT INFECTION
     Route: 042
     Dates: start: 20050803, end: 20050805

REACTIONS (3)
  - DEPRESSED LEVEL OF CONSCIOUSNESS [None]
  - HYPERGLYCAEMIA [None]
  - POLLAKIURIA [None]
